FAERS Safety Report 7645618-8 (Version None)
Quarter: 2011Q3

REPORT INFORMATION
  Report Type: 
  Country: None (occurrence: None)
  Receive Date: 20110729
  Receipt Date: 20110722
  Transmission Date: 20111222
  Serious: Yes (Hospitalization)
  Sender: FDA-Public Use
  Company Number: PHHY2011GB65977

PATIENT
  Age: 68 Year
  Sex: Male
  Weight: 70 kg

DRUGS (1)
  1. INDOMETHACIN [Suspect]
     Indication: GOUT
     Dosage: 50 MG, QD
     Route: 048
     Dates: start: 20110601, end: 20110711

REACTIONS (3)
  - AGGRESSION [None]
  - AGITATION [None]
  - ABNORMAL BEHAVIOUR [None]
